FAERS Safety Report 16894375 (Version 1)
Quarter: 2019Q4

REPORT INFORMATION
  Report Type: Report from Study
  Country: GB (occurrence: GB)
  Receive Date: 20191008
  Receipt Date: 20191008
  Transmission Date: 20200122
  Serious: Yes (Hospitalization)
  Sender: FDA-Public Use
  Company Number: GB-MYLANLABS-2019M1092607

PATIENT
  Age: 57 Year
  Sex: Female

DRUGS (19)
  1. DOCETAXEL. [Suspect]
     Active Substance: DOCETAXEL
     Indication: BREAST CANCER
     Dosage: 150 MILLIGRAM, Q3W
     Route: 042
     Dates: start: 20151127, end: 20160308
  2. DOMPERIDONE [Concomitant]
     Active Substance: DOMPERIDONE
     Dosage: 10 MILLIGRAM
     Route: 048
     Dates: end: 20151126
  3. GENTAMICIN. [Concomitant]
     Active Substance: GENTAMICIN
     Indication: FEBRILE NEUTROPENIA
     Dosage: 280 MILLIGRAM
     Route: 042
     Dates: start: 20151203, end: 20151203
  4. LETROZOLE. [Suspect]
     Active Substance: LETROZOLE
     Indication: BREAST CANCER
     Dosage: 2.5 MILLIGRAM, QD
     Route: 048
     Dates: start: 20150709, end: 20151015
  5. PERTUZUMAB. [Suspect]
     Active Substance: PERTUZUMAB
     Indication: BREAST CANCER
     Dosage: 840 MILLIGRAM, Q3W (LOADING DOSE)
     Route: 042
     Dates: start: 20151125
  6. DALTEPARIN [Concomitant]
     Active Substance: DALTEPARIN
     Indication: PULMONARY EMBOLISM
     Dosage: 2000 INTERNATIONAL UNIT, QD
     Route: 058
     Dates: start: 20160421
  7. TAZOCIN [Concomitant]
     Active Substance: PIPERACILLIN SODIUM\TAZOBACTAM SODIUM
     Indication: FEBRILE NEUTROPENIA
     Dosage: 4.5 GRAM
     Route: 042
     Dates: start: 20151203, end: 20151205
  8. TRASTUZUMAB. [Suspect]
     Active Substance: TRASTUZUMAB
     Dosage: 672 MILLIGRAM, Q3W (MAINTENANCE DOSE)
     Route: 042
     Dates: start: 20151217
  9. CO-AMOXICLAV                       /00756801/ [Concomitant]
     Active Substance: AMOXICILLIN\CLAVULANIC ACID
     Indication: FEBRILE NEUTROPENIA
     Dosage: 1875 MILLIGRAM, QD
     Route: 048
     Dates: start: 20151205, end: 20151208
  10. LOPERAMIDE [Concomitant]
     Active Substance: LOPERAMIDE
     Dosage: 2 MILLIGRAM
     Route: 048
     Dates: start: 20151126
  11. PERTUZUMAB. [Suspect]
     Active Substance: PERTUZUMAB
     Dosage: 420 MILLIGRAM, Q3W (MAINTENANCE DOSE)
     Route: 042
     Dates: start: 20151215
  12. DENOSUMAB [Concomitant]
     Active Substance: DENOSUMAB
     Indication: PRODUCT USED FOR UNKNOWN INDICATION
     Dosage: 120 MILLIGRAM, MONTHLY
     Route: 058
     Dates: start: 20150723
  13. FLUCONAZOLE. [Concomitant]
     Active Substance: FLUCONAZOLE
     Dosage: START DAY 5 POST CHEMO FOR 7 DAYS
     Route: 048
     Dates: start: 20151130
  14. DEXAMETHASONE. [Concomitant]
     Active Substance: DEXAMETHASONE
     Dosage: BD FOR THREE DAYS PRIOR TO CHEMO CYCLE
     Route: 048
     Dates: start: 20151125
  15. COLECALCIFEROL [Concomitant]
     Active Substance: CHOLECALCIFEROL
     Indication: PULMONARY EMBOLISM
     Dosage: 2000 INTERNATIONAL UNIT, QD
     Route: 048
     Dates: start: 20151203
  16. TRASTUZUMAB. [Suspect]
     Active Substance: TRASTUZUMAB
     Indication: BREAST CANCER
     Dosage: 882 MILLIGRAM, Q3W (LOADING DOSE)
     Route: 042
     Dates: start: 20151126
  17. XGEVA [Concomitant]
     Active Substance: DENOSUMAB
     Dosage: 70 MILLIGRAM, MONTHLY
     Route: 058
     Dates: start: 20150820
  18. CALCICHEW [Concomitant]
     Active Substance: CALCIUM CARBONATE
     Dosage: 1.25 GRAM, QD
     Route: 048
     Dates: start: 20150723
  19. LEVOFLOXACIN. [Concomitant]
     Active Substance: LEVOFLOXACIN
     Dosage: START DAY 5 FOLLOWING CHEMO FOR 10 DAYS
     Route: 048
     Dates: start: 20151130

REACTIONS (2)
  - Vaginal haemorrhage [Recovered/Resolved]
  - Disease progression [Unknown]

NARRATIVE: CASE EVENT DATE: 20161018
